FAERS Safety Report 7584566-9 (Version None)
Quarter: 2011Q2

REPORT INFORMATION
  Report Type: 
  Country: None (occurrence: None)
  Receive Date: 20110630
  Receipt Date: 20110624
  Transmission Date: 20111010
  Serious: Yes (Other)
  Sender: FDA-Public Use
  Company Number: IE-ABBOTT-11P-229-0834385-00

PATIENT
  Sex: Female

DRUGS (3)
  1. HUMIRA [Suspect]
     Indication: CROHN'S DISEASE
     Dosage: (160MG) STARTED 4 WEEKS AGO
     Route: 058
     Dates: start: 20110501
  2. HUMIRA [Suspect]
     Dosage: (80MG)
     Route: 058
  3. HUMIRA [Suspect]
     Route: 058

REACTIONS (3)
  - TONSILLECTOMY [None]
  - DYSPNOEA [None]
  - CHEST DISCOMFORT [None]
